FAERS Safety Report 8953611 (Version 1)
Quarter: 2012Q4

REPORT INFORMATION
  Report Type: 
  Country: FR (occurrence: FR)
  Receive Date: 20121206
  Receipt Date: 20121206
  Transmission Date: 20130627
  Serious: Yes (Other)
  Sender: FDA-Public Use
  Company Number: FR-PFIZER INC-2012304312

PATIENT
  Age: 56 Year
  Sex: Male

DRUGS (7)
  1. FLUOROURACILE PFIZER [Suspect]
     Dosage: 780 mg
     Route: 042
     Dates: start: 20120503, end: 20120503
  2. ELVORINE [Suspect]
     Dosage: 390 mg, single
     Route: 042
     Dates: start: 20120503, end: 20120503
  3. OXALIPLATIN [Suspect]
     Indication: COLON CANCER
     Dosage: 165 mg, single
     Route: 042
     Dates: start: 20120503, end: 20120503
  4. PRIMPERAN [Suspect]
     Dosage: 20 mg, single
     Route: 042
     Dates: start: 20120503, end: 20120503
  5. ONDANSETRON [Suspect]
     Dosage: 8 mg, single
     Route: 042
     Dates: start: 20120503, end: 20120503
  6. AVASTIN [Suspect]
     Dosage: 390 mg, single
     Route: 042
     Dates: start: 20120503, end: 20120503
  7. DEXAMETHASONE MERCK [Concomitant]
     Dosage: 20 mg, single
     Dates: start: 20120503, end: 20120503

REACTIONS (2)
  - Laryngeal oedema [Recovered/Resolved]
  - Erythema [Recovered/Resolved]
